FAERS Safety Report 15712632 (Version 1)
Quarter: 2018Q4

REPORT INFORMATION
  Report Type: Spontaneous
  Country: GB (occurrence: GB)
  Receive Date: 20181212
  Receipt Date: 20181212
  Transmission Date: 20190205
  Serious: Yes (Other)
  Sender: FDA-Public Use
  Company Number: GB-CONCORDIA PHARMACEUTICALS INC.-E2B_00017702

PATIENT
  Age: 70 Year

DRUGS (6)
  1. TRANYLCYPROMINE [Suspect]
     Active Substance: TRANYLCYPROMINE
  2. MORPHINE [Suspect]
     Active Substance: MORPHINE
  3. RAMIPRIL. [Suspect]
     Active Substance: RAMIPRIL
  4. PRIADEL [Suspect]
     Active Substance: LITHIUM
  5. PROCHLORPERAZINE. [Suspect]
     Active Substance: PROCHLORPERAZINE
  6. OXYCODONE [Suspect]
     Active Substance: OXYCODONE

REACTIONS (8)
  - Confusional state [Unknown]
  - Drug interaction [Unknown]
  - Coordination abnormal [Unknown]
  - Therapeutic drug monitoring analysis incorrectly performed [Unknown]
  - Nausea [Unknown]
  - Toxicity to various agents [Unknown]
  - Tremor [Unknown]
  - Renal impairment [Unknown]
